FAERS Safety Report 9850090 (Version 3)
Quarter: 2014Q2

REPORT INFORMATION
  Report Type: Spontaneous
  Country: US (occurrence: US)
  Receive Date: 20140128
  Receipt Date: 20140526
  Transmission Date: 20141212
  Serious: Yes (Other)
  Sender: FDA-Public Use
  Company Number: PHEH2014US001737

PATIENT
  Sex: Male

DRUGS (4)
  1. DIOVAN [Suspect]
     Indication: CARDIAC FAILURE
     Dosage: 80 MG, DAILY
     Route: 048
     Dates: start: 20110725
  2. WARFARIN [Concomitant]
     Dosage: (VARIABLE DAILY)
     Route: 048
  3. TORSEMIDE [Concomitant]
     Indication: OEDEMA
     Dosage: 20 MG, DAILY
     Route: 048
  4. CARVEDILOL [Concomitant]
     Route: 048

REACTIONS (1)
  - Visual acuity reduced [Unknown]
